FAERS Safety Report 23091342 (Version 1)
Quarter: 2023Q4

REPORT INFORMATION
  Report Type: Spontaneous
  Country: GB (occurrence: GB)
  Receive Date: 20231020
  Receipt Date: 20231020
  Transmission Date: 20240109
  Serious: Yes (Disabling)
  Sender: FDA-Public Use
  Company Number: GB-MHRA-MED-202310092244558170-BFSCK

PATIENT
  Age: 57 Year
  Sex: Female
  Weight: 68 kg

DRUGS (2)
  1. ALENDRONIC ACID [Suspect]
     Active Substance: ALENDRONIC ACID
     Indication: Osteoporosis prophylaxis
     Dosage: UNIT DOSE : 70 MG, FREQUENCY TIME : 1 WEEK , THERAPY END DATE : NASK
     Route: 065
     Dates: start: 20231002
  2. VITAMIN D NOS [Suspect]
     Active Substance: VITAMIN D NOS
     Indication: Osteoporosis prophylaxis
     Dosage: UNIT DOSE : 70 MG, FREQUENCY TIME : 1 WEEK, THERAPY END DATE : NASK
     Route: 065
     Dates: start: 20231002

REACTIONS (1)
  - Back pain [Not Recovered/Not Resolved]

NARRATIVE: CASE EVENT DATE: 20231005
